FAERS Safety Report 16248937 (Version 1)
Quarter: 2019Q2

REPORT INFORMATION
  Report Type: Spontaneous
  Country: US (occurrence: US)
  Receive Date: 20190429
  Receipt Date: 20190429
  Transmission Date: 20190711
  Serious: No
  Sender: FDA-Public Use
  Company Number: US-AMGEN-USASP2019065497

PATIENT
  Sex: Male

DRUGS (2)
  1. VECTIBIX [Suspect]
     Active Substance: PANITUMUMAB
     Indication: COLORECTAL CANCER
     Dosage: UNK
     Route: 065
  2. VECTIBIX [Suspect]
     Active Substance: PANITUMUMAB
     Dosage: UNK, DOSE DECREASED
     Route: 065

REACTIONS (1)
  - Genital rash [Unknown]
